FAERS Safety Report 6127177-4 (Version None)
Quarter: 2009Q1

REPORT INFORMATION
  Report Type: 
  Country: None (occurrence: None)
  Receive Date: 20090320
  Receipt Date: 20090305
  Transmission Date: 20090719
  Serious: Yes (Hospitalization)
  Sender: FDA-Public Use
  Company Number: PL-GENENTECH-277565

PATIENT
  Sex: Female

DRUGS (7)
  1. BEVACIZUMAB [Suspect]
     Indication: BREAST CANCER
     Dosage: 1290 MG, Q3W
     Route: 042
     Dates: start: 20090202
  2. TRASTUZUMAB [Suspect]
     Indication: BREAST CANCER
     Dosage: 688 MG, Q3W
     Route: 042
     Dates: start: 20090202
  3. CARBOPLATIN [Suspect]
     Indication: BREAST CANCER
     Dosage: 850 MG, Q3W
     Route: 042
     Dates: start: 20090202, end: 20090202
  4. DOCETAXEL [Suspect]
     Indication: BREAST CANCER
     Dosage: 143 MG, Q3W
     Route: 042
     Dates: start: 20090202, end: 20090202
  5. DEXAMETHASONE [Concomitant]
     Indication: DRUG USE FOR UNKNOWN INDICATION
     Dosage: UNK
     Dates: start: 20090201, end: 20090203
  6. ONDANSETRON [Concomitant]
     Indication: DRUG USE FOR UNKNOWN INDICATION
     Dosage: UNK
     Dates: start: 20090202, end: 20090202
  7. LEVOTHYROXINE SODIUM [Concomitant]
     Indication: DRUG USE FOR UNKNOWN INDICATION
     Dosage: UNK
     Dates: start: 20080815

REACTIONS (2)
  - FATIGUE [None]
  - STOMATITIS [None]
